FAERS Safety Report 10168224 (Version 2)
Quarter: 2014Q2

REPORT INFORMATION
  Report Type: Spontaneous
  Country: US (occurrence: US)
  Receive Date: 20140512
  Receipt Date: 20140512
  Transmission Date: 20141212
  Serious: No
  Sender: FDA-Public Use
  Company Number: US-ASTRAZENECA-2010SE53511

PATIENT
  Age: 73 Year
  Sex: Female
  Weight: 56.7 kg

DRUGS (6)
  1. FASLODEX [Suspect]
     Indication: BREAST CANCER
     Dosage: ONE INJECTION
     Route: 030
     Dates: start: 201004
  2. FASLODEX [Suspect]
     Indication: BREAST CANCER
     Dosage: TWO INJECTIONS
     Route: 030
  3. LIPITOR [Concomitant]
     Indication: BLOOD CHOLESTEROL INCREASED
     Route: 048
  4. ENALAPRIL [Concomitant]
     Indication: HYPERTENSION
     Route: 048
  5. PROTONIX [Concomitant]
     Indication: GASTROOESOPHAGEAL REFLUX DISEASE
     Dosage: UNK DAILY
     Route: 048
  6. AMBIEN [Concomitant]
     Indication: SLEEP DISORDER
     Route: 048

REACTIONS (7)
  - Dysgeusia [Unknown]
  - Breath odour [Unknown]
  - Urine odour abnormal [Unknown]
  - Tumour marker increased [Unknown]
  - Injection site pain [Unknown]
  - Intentional product misuse [Unknown]
  - Off label use [Unknown]
